FAERS Safety Report 9739198 (Version 1)
Quarter: 2013Q4

REPORT INFORMATION
  Report Type: Spontaneous
  Country: US (occurrence: US)
  Receive Date: 20131209
  Receipt Date: 20131209
  Transmission Date: 20140711
  Serious: No
  Sender: FDA-Public Use
  Company Number: US-PFIZER INC-2013349669

PATIENT
  Age: 82 Year
  Sex: Female
  Weight: 80.73 kg

DRUGS (3)
  1. LYRICA [Suspect]
     Indication: NEUROPATHY PERIPHERAL
     Dosage: 50 MG, 1X/DAY
     Route: 048
     Dates: start: 20131126
  2. LYRICA [Suspect]
     Indication: RESTLESS LEGS SYNDROME
  3. COUMADIN [Concomitant]
     Dosage: UNK

REACTIONS (3)
  - Off label use [Unknown]
  - Burning sensation [Unknown]
  - Therapeutic response unexpected [Unknown]
